FAERS Safety Report 7660745-7 (Version None)
Quarter: 2011Q3

REPORT INFORMATION
  Report Type: 
  Country: None (occurrence: None)
  Receive Date: 20110805
  Receipt Date: 20101104
  Transmission Date: 20111222
  Serious: No
  Sender: FDA-Public Use
  Company Number: US-ABBOTT-10P-163-0683543-00

PATIENT
  Sex: Female
  Weight: 83.99 kg

DRUGS (3)
  1. OMEPRAZOLE [Concomitant]
     Indication: GASTROOESOPHAGEAL REFLUX DISEASE
  2. NIASPAN [Suspect]
     Indication: BLOOD CHOLESTEROL INCREASED
     Dates: start: 20101028, end: 20101104
  3. ASPIRIN [Concomitant]
     Indication: PROPHYLAXIS

REACTIONS (7)
  - SKIN TIGHTNESS [None]
  - SWELLING [None]
  - PALPITATIONS [None]
  - FLUSHING [None]
  - GENERALISED ERYTHEMA [None]
  - BURNING SENSATION [None]
  - HEART RATE INCREASED [None]
